FAERS Safety Report 7429099-5 (Version None)
Quarter: 2011Q2

REPORT INFORMATION
  Report Type: 
  Country: None (occurrence: None)
  Receive Date: 20110421
  Receipt Date: 20110311
  Transmission Date: 20111010
  Serious: Yes (Other)
  Sender: FDA-Public Use
  Company Number: PHHO2011IE04678

PATIENT
  Sex: Male
  Weight: 92.2 kg

DRUGS (14)
  1. BLINDED NO TREATMENT RECEIVED [Suspect]
     Indication: CARDIOVASCULAR DISORDER
     Dosage: NO TREATMENT
  2. BLINDED ALISKIREN [Suspect]
     Indication: CARDIOVASCULAR DISORDER
     Dosage: NO TREATMENT
  3. BLINDED PLACEBO [Suspect]
     Indication: CARDIOVASCULAR DISORDER
     Dosage: NO TREATMENT
  4. TICLOPIDINE HCL [Concomitant]
  5. CLOPIDOGREL [Concomitant]
  6. ESIDRIX [Suspect]
     Indication: CARDIOVASCULAR DISORDER
     Dosage: NO TREATMENT
  7. ESIDRIX [Suspect]
     Indication: CARDIOVASCULAR DISORDER
     Dosage: 25 MG, QD
     Route: 048
     Dates: end: 20110309
  8. ATENOLOL [Concomitant]
  9. ALISKIREN [Suspect]
     Indication: CARDIOVASCULAR DISORDER
     Dosage: 300 MG, QD
     Route: 048
     Dates: end: 20110309
  10. BLINDED AMLODIPINE [Suspect]
     Indication: CARDIOVASCULAR DISORDER
     Dosage: NO TREATMENT
  11. ASPIRIN [Concomitant]
  12. ATORVASTATIN [Concomitant]
  13. INSULIN [Concomitant]
  14. PERINDOPRIL [Concomitant]

REACTIONS (4)
  - DIZZINESS [None]
  - DIARRHOEA [None]
  - DRUG INTOLERANCE [None]
  - ABDOMINAL PAIN [None]
